FAERS Safety Report 7271003-7 (Version None)
Quarter: 2011Q1

REPORT INFORMATION
  Report Type: 
  Country: None (occurrence: None)
  Receive Date: 20110202
  Receipt Date: 20110128
  Transmission Date: 20110831
  Serious: Yes (Hospitalization, Other)
  Sender: FDA-Public Use
  Company Number: US-PFIZER INC-2010101438

PATIENT
  Sex: Male

DRUGS (5)
  1. CHANTIX [Suspect]
     Dosage: STARTER PACK (1MG AND 0.5 MG)
     Dates: start: 20071015
  2. VERAPAMIL [Concomitant]
     Indication: BLOOD PRESSURE INCREASED
     Dosage: UNK
     Dates: start: 19940101
  3. XANAX [Concomitant]
     Indication: ANXIETY
     Dosage: UNK
     Dates: start: 19950101
  4. XANAX [Concomitant]
     Indication: DEPRESSION
  5. CHANTIX [Suspect]
     Indication: SMOKING CESSATION THERAPY
     Dosage: STARTER PACK (1MG AND 0.5 MG)
     Route: 048
     Dates: start: 20060201, end: 20071001

REACTIONS (11)
  - INTENTIONAL OVERDOSE [None]
  - DEPRESSION [None]
  - PARANOIA [None]
  - AGGRESSION [None]
  - ANXIETY [None]
  - DISTURBANCE IN ATTENTION [None]
  - PSYCHOTIC DISORDER [None]
  - DELUSION [None]
  - HOSTILITY [None]
  - CONFUSIONAL STATE [None]
  - SUICIDE ATTEMPT [None]
